FAERS Safety Report 17803984 (Version 1)
Quarter: 2020Q2

REPORT INFORMATION
  Report Type: Spontaneous
  Country: DE (occurrence: DE)
  Receive Date: 20200519
  Receipt Date: 20200519
  Transmission Date: 20200714
  Serious: Yes (Hospitalization)
  Sender: FDA-Public Use
  Company Number: NVSC2020DE136052

PATIENT
  Age: 93 Year
  Sex: Male
  Weight: 74 kg

DRUGS (10)
  1. TORASEMID [Concomitant]
     Active Substance: TORSEMIDE
     Indication: PRODUCT USED FOR UNKNOWN INDICATION
     Dosage: 10 MG, QD (1-0-0-0)
     Route: 065
  2. PREDNISOLONE. [Suspect]
     Active Substance: PREDNISOLONE
     Indication: PRODUCT USED FOR UNKNOWN INDICATION
     Dosage: 0.5 DF, QD (0.5-0-0-0)
     Route: 065
  3. CANDESARTAN. [Concomitant]
     Active Substance: CANDESARTAN
     Indication: PRODUCT USED FOR UNKNOWN INDICATION
     Dosage: 4 MG, QD ( 0-0-0.5-0)
     Route: 065
  4. PANTOPRAZOL [Concomitant]
     Active Substance: PANTOPRAZOLE SODIUM
     Indication: PRODUCT USED FOR UNKNOWN INDICATION
     Dosage: 20 MG, QD (1-0-0-0 )
     Route: 065
  5. PHENPROCOUMON [Suspect]
     Active Substance: PHENPROCOUMON
     Indication: PRODUCT USED FOR UNKNOWN INDICATION
     Dosage: 3 MG
     Route: 065
  6. DIGIMERCK [Concomitant]
     Active Substance: DIGITOXIN
     Indication: PRODUCT USED FOR UNKNOWN INDICATION
     Dosage: 0.07 MG, QD (1-0-0-0)
     Route: 065
  7. ISMN [Concomitant]
     Active Substance: ISOSORBIDE MONONITRATE
     Indication: PRODUCT USED FOR UNKNOWN INDICATION
     Dosage: 40 MG, QD (1-0-0-0 )
     Route: 065
  8. CORVATON [Concomitant]
     Active Substance: MOLSIDOMINE
     Indication: PRODUCT USED FOR UNKNOWN INDICATION
     Dosage: 1 DF, QD (0-0-1-0 )
     Route: 065
  9. ACC [Concomitant]
     Active Substance: ACETYLCYSTEINE
     Indication: PRODUCT USED FOR UNKNOWN INDICATION
     Dosage: 200 MG, QD (1-0-0-0)
     Route: 065
  10. METOPROLOL. [Concomitant]
     Active Substance: METOPROLOL
     Indication: PRODUCT USED FOR UNKNOWN INDICATION
     Dosage: 95 MG, QD (0.5-0-0-0 )
     Route: 065

REACTIONS (7)
  - Dyspepsia [Unknown]
  - Pallor [Unknown]
  - Dysphagia [Unknown]
  - Haematochezia [Unknown]
  - Anaemia [Unknown]
  - General physical health deterioration [Unknown]
  - Flatulence [Unknown]
